FAERS Safety Report 6715193 (Version 19)
Quarter: 2013Q3

REPORT INFORMATION
  Report Type: Spontaneous
  Country: US (occurrence: US)
  Receive Date: 20080731
  Receipt Date: 20130819
  Transmission Date: 20140515
  Serious: Yes (Other)
  Sender: FDA-Public Use
  Company Number: PHEH2008US06601

PATIENT
  Age: 64 Year
  Sex: Female

DRUGS (80)
  1. ZOMETA [Suspect]
     Dosage: 4 MG, UNK
     Route: 042
     Dates: start: 2005, end: 200706
  2. ZOMETA [Suspect]
     Dosage: 3.5 MG, UNK
  3. ZOMETA [Suspect]
     Dosage: 3.3 MG, UNK
  4. LEVOXYL [Concomitant]
  5. THALOMID [Concomitant]
  6. LORAZEPAM [Concomitant]
  7. WARFARIN [Concomitant]
  8. HYDROCODONE [Concomitant]
  9. CLINDAMYCIN HYDROCHLORIDE [Concomitant]
  10. POTASSIUM CHLORIDE [Concomitant]
  11. FENTANYL [Concomitant]
  12. FUROSEMIDE [Concomitant]
  13. CYMBALTA [Concomitant]
  14. DEXAMETHASONE [Concomitant]
  15. MEPHYTON [Concomitant]
  16. NYSTATIN [Concomitant]
  17. REVLIMID [Concomitant]
     Dosage: 15 MG, UNK
  18. ULTRAM [Concomitant]
  19. METRONIDAZOLE [Concomitant]
  20. AMBIEN [Concomitant]
  21. LYRICA [Concomitant]
  22. LEXAPRO [Concomitant]
  23. IBUPROFEN [Concomitant]
  24. AZITHROMYCIN [Concomitant]
  25. OXYCODONE [Concomitant]
  26. LISINOPRIL [Concomitant]
  27. CEPHALEXIN [Concomitant]
  28. FLUCONAZOLE [Concomitant]
  29. ZOLPIDEM TARTRATE [Concomitant]
  30. NORTRIPTYLINE HYDROCHLORIDE [Concomitant]
  31. CHLORHEXIDINE [Concomitant]
  32. BIOTENE [Concomitant]
  33. DARVOCET-N [Concomitant]
  34. FISH OIL [Concomitant]
  35. CALCIUM [Concomitant]
  36. BENICAR HCT [Concomitant]
  37. LORTAB [Concomitant]
  38. LEVAQUIN [Concomitant]
  39. CELEBREX [Concomitant]
  40. TRAMADOL [Concomitant]
  41. LOVENOX [Concomitant]
  42. PROPOXYPHENE [Concomitant]
  43. BENICAR [Concomitant]
  44. MUCINEX [Concomitant]
  45. DIOVAN ^CIBA-GEIGY^ [Concomitant]
  46. ACE INHIBITOR NOS [Concomitant]
  47. MAVIK [Concomitant]
  48. MAGIC MOUTHWASH [Concomitant]
  49. EFFEXOR [Concomitant]
  50. CHEMOTHERAPEUTICS NOS [Concomitant]
  51. TYLENOL [Concomitant]
  52. KEFZOL [Concomitant]
  53. COLACE [Concomitant]
  54. PEPCID [Concomitant]
  55. ZOFRAN [Concomitant]
  56. SOMA [Concomitant]
  57. REGLAN                                  /USA/ [Concomitant]
  58. TORADOL [Concomitant]
  59. NUBAIN ^DUPONT PHARMA^ [Concomitant]
  60. BENADRYL /OLD FORM/ [Concomitant]
  61. MORPHINE [Concomitant]
  62. GINKGO BILOBA [Concomitant]
  63. VITAMINS [Concomitant]
  64. COUMADIN ^BOOTS^ [Concomitant]
  65. EPHEDRINE SULFATE [Concomitant]
  66. ESMOLOL [Concomitant]
  67. NEOSTIGMINE METHYLSULFATE [Concomitant]
  68. ONDANSETRON [Concomitant]
  69. PHENYLEPHRINE [Concomitant]
  70. ROCURONIUM BROMIDE [Concomitant]
  71. PROPOFOL [Concomitant]
  72. REMIFENTANIL [Concomitant]
  73. LOPERAMIDE [Concomitant]
  74. DESVENLAFAXINE [Concomitant]
  75. PREGABALIN [Concomitant]
  76. ACYCLOVIR [Concomitant]
  77. ENOXAPARIN [Concomitant]
  78. PERIDEX [Concomitant]
  79. DECADRON                                /CAN/ [Concomitant]
  80. THALIDOMIDE [Concomitant]

REACTIONS (75)
  - Aphthous stomatitis [Unknown]
  - Fatigue [Unknown]
  - Back pain [Unknown]
  - Musculoskeletal discomfort [Unknown]
  - Depressed mood [Unknown]
  - Tendonitis [Unknown]
  - Diverticulitis [Unknown]
  - Arthralgia [Unknown]
  - Joint lock [Unknown]
  - Cardiac disorder [Unknown]
  - Thyroid disorder [Unknown]
  - Thrombosis [Unknown]
  - Cyst [Unknown]
  - Diarrhoea [Unknown]
  - Diverticulum [Unknown]
  - Dyspnoea [Unknown]
  - Oedema [Unknown]
  - Asphyxia [Unknown]
  - Hypoxia [Unknown]
  - Chest pain [Unknown]
  - Sinusitis [Unknown]
  - Bone lesion [Unknown]
  - Synovial cyst [Unknown]
  - Dysphagia [Unknown]
  - Gait disturbance [Unknown]
  - Macular fibrosis [Unknown]
  - Sleep apnoea syndrome [Unknown]
  - Periodic limb movement disorder [Unknown]
  - Pain in extremity [Unknown]
  - Deep vein thrombosis [Unknown]
  - Hypoaesthesia [Unknown]
  - Paraesthesia [Unknown]
  - Constipation [Unknown]
  - Contusion [Unknown]
  - Asthenia [Unknown]
  - Agitation [Unknown]
  - Dyspnoea paroxysmal nocturnal [Unknown]
  - Nausea [Unknown]
  - Myalgia [Unknown]
  - Lethargy [Unknown]
  - Hypoacusis [Unknown]
  - International normalised ratio decreased [Unknown]
  - Impaired gastric emptying [Unknown]
  - Weight decreased [Unknown]
  - Dehydration [Unknown]
  - Irritable bowel syndrome [Unknown]
  - Ventricular extrasystoles [Unknown]
  - Supraventricular extrasystoles [Unknown]
  - Spinal disorder [Unknown]
  - Local swelling [Unknown]
  - Sinus disorder [Unknown]
  - Bone pain [Unknown]
  - Mitral valve calcification [Unknown]
  - Spinal column stenosis [Unknown]
  - Rib fracture [Unknown]
  - Pulmonary hypertension [Unknown]
  - Haematemesis [Unknown]
  - Pulmonary embolism [Unknown]
  - Osteonecrosis of jaw [Unknown]
  - Injury [Unknown]
  - Pain [Unknown]
  - Anxiety [Unknown]
  - Decreased interest [Unknown]
  - Osteomyelitis [Unknown]
  - Oral pain [Unknown]
  - Swelling [Unknown]
  - Pain in jaw [Unknown]
  - Impaired healing [Unknown]
  - Renal failure chronic [Unknown]
  - Metastases to bone [Unknown]
  - Osteoarthritis [Unknown]
  - Spondylolisthesis [Unknown]
  - Intervertebral disc degeneration [Unknown]
  - Otitis media acute [Unknown]
  - Hot flush [Unknown]
